FAERS Safety Report 7679444-0 (Version None)
Quarter: 2011Q3

REPORT INFORMATION
  Report Type: 
  Country: None (occurrence: None)
  Receive Date: 20110812
  Receipt Date: 20110810
  Transmission Date: 20111222
  Serious: Yes (Death, Hospitalization)
  Sender: FDA-Public Use
  Company Number: AU-B.I. PHARMACEUTICALS,INC./RIDGEFIELD-2011-AU-00675AU

PATIENT
  Sex: Male
  Weight: 78 kg

DRUGS (6)
  1. PREDNISONE [Concomitant]
  2. KARVEA [Concomitant]
  3. PRILOSEC [Concomitant]
  4. PRAVACHOL [Concomitant]
  5. PRADAXA [Suspect]
     Indication: ATRIAL FIBRILLATION
     Dosage: 220 MG
     Dates: start: 20110724, end: 20110726
  6. DIGOXIN [Concomitant]

REACTIONS (4)
  - CARDIAC ARREST [None]
  - ATRIAL FIBRILLATION [None]
  - ACUTE MYOCARDIAL INFARCTION [None]
  - CORONARY ARTERY DISEASE [None]
